FAERS Safety Report 10951479 (Version 1)
Quarter: 2015Q1

REPORT INFORMATION
  Report Type: Spontaneous
  Country: US (occurrence: US)
  Receive Date: 20150324
  Receipt Date: 20150324
  Transmission Date: 20150721
  Serious: Yes (Death, Other)
  Sender: FDA-Public Use
  Company Number: PHEH2015US005569

PATIENT
  Sex: Male

DRUGS (3)
  1. DILANTIN [Suspect]
     Active Substance: PHENYTOIN
     Indication: PRODUCT USED FOR UNKNOWN INDICATION
     Dosage: DOSE DESCRIPTION: 300 MG, TID
     Route: 064
  2. TEGRETOL [Suspect]
     Active Substance: CARBAMAZEPINE
     Indication: PRODUCT USED FOR UNKNOWN INDICATION
     Route: 064
  3. DILANTIN [Suspect]
     Active Substance: PHENYTOIN
     Dosage: DOSE DESCRIPTION: 100 MG A DAY
     Route: 064

REACTIONS (4)
  - Sudden infant death syndrome [Fatal]
  - Congenital anomaly [Unknown]
  - Cardiac valve disease [Fatal]
  - Foetal exposure during pregnancy [Unknown]
